FAERS Safety Report 21743688 (Version 1)
Quarter: 2022Q4

REPORT INFORMATION
  Report Type: Spontaneous
  Country: BR (occurrence: BR)
  Receive Date: 20221217
  Receipt Date: 20221217
  Transmission Date: 20230113
  Serious: Yes (Other)
  Sender: FDA-Public Use
  Company Number: BR-Accord-292314

PATIENT
  Age: 72 Year
  Sex: Female
  Weight: 100 kg

DRUGS (9)
  1. PACLITAXEL [Suspect]
     Active Substance: PACLITAXEL
     Indication: Oesophageal neoplasm
     Route: 042
     Dates: start: 20221125, end: 20221125
  2. CARBOPLATIN [Suspect]
     Active Substance: CARBOPLATIN
     Indication: Product used for unknown indication
     Route: 042
     Dates: start: 20221125, end: 20221125
  3. SALINE [Concomitant]
     Active Substance: SODIUM CHLORIDE
     Dosage: STRENGTH: 0.9%
     Route: 042
     Dates: start: 20221125
  4. DEXTROSE [Concomitant]
     Active Substance: DEXTROSE
     Dosage: STRENGTH: 5%
     Route: 042
     Dates: start: 20221125, end: 20221125
  5. LOSARTAN [Concomitant]
     Active Substance: LOSARTAN
  6. CILOSTAZOL [Concomitant]
     Active Substance: CILOSTAZOL
  7. SIMVASTATIN [Concomitant]
     Active Substance: SIMVASTATIN
  8. NIFEDIPINE [Concomitant]
     Active Substance: NIFEDIPINE
  9. ASPIRIN [Concomitant]
     Active Substance: ASPIRIN

REACTIONS (5)
  - Hyperaemia [Recovered/Resolved]
  - Pruritus [Recovered/Resolved]
  - Rash [Recovered/Resolved]
  - Hypertension [Recovered/Resolved]
  - Off label use [Unknown]

NARRATIVE: CASE EVENT DATE: 20221125
